FAERS Safety Report 11282873 (Version 3)
Quarter: 2015Q3

REPORT INFORMATION
  Report Type: Report from Study
  Country: JP (occurrence: US)
  Receive Date: 20150720
  Receipt Date: 20150817
  Transmission Date: 20151125
  Serious: Yes (Hospitalization)
  Sender: FDA-Public Use
  Company Number: JP-BIOGENIDEC-2015BI094974

PATIENT
  Age: 54 Year
  Sex: Male
  Weight: 54 kg

DRUGS (13)
  1. VITAMEDIN 25 [Concomitant]
     Indication: PROPHYLAXIS
     Route: 048
     Dates: start: 20130831
  2. ANTIHEMOPHILIC FACTOR (RECOMBINANT), FC FUSION PROTEIN [Suspect]
     Active Substance: (1-743)-(1638-2332)-BLOOD-COAGULATION FACTOR VIII (SYNTHETIC HUMAN) FUSION PROTEIN WITH IMMUNOGLOBULIN G1 (SYNTHETIC HUMAN FC DOMAIN FRAGMENT), (1444-6^),(1447-9^)-BIS(DISULFIDE) WITH IMMUNOGLOBULIN G1 (SYNTHETIC HUMAN FC DOMAIN FRAGMENT)
     Indication: FACTOR VIII DEFICIENCY
     Route: 042
     Dates: start: 20111226, end: 20131118
  3. LOXONIN [Concomitant]
     Active Substance: LOXOPROFEN SODIUM
     Indication: HAEMOPHILIC ARTHROPATHY
     Route: 048
     Dates: start: 20120827
  4. AMLODIPINE BESYLATE. [Concomitant]
     Active Substance: AMLODIPINE BESYLATE
     Indication: CARDIOVASCULAR EVENT PROPHYLAXIS
     Route: 048
     Dates: start: 20140326
  5. ELDECALCITOL [Concomitant]
     Active Substance: ELDECALCITOL
     Indication: HAEMOPHILIC ARTHROPATHY
     Route: 048
     Dates: start: 20120425
  6. CALCIUM LACTATE HYDRATE [Concomitant]
     Active Substance: CALCIUM LACTATE
     Indication: HAEMOPHILIC ARTHROPATHY
     Route: 048
     Dates: start: 20131127
  7. SLOW-K [Concomitant]
     Active Substance: POTASSIUM CHLORIDE
     Indication: HYPOKALAEMIA
     Route: 048
     Dates: start: 20150414
  8. MUCOSTA [Concomitant]
     Active Substance: REBAMIPIDE
     Indication: GASTRITIS PROPHYLAXIS
     Route: 048
     Dates: start: 20081127
  9. GASTA D [Concomitant]
     Indication: GASTRITIS PROPHYLAXIS
     Route: 048
     Dates: start: 20081127
  10. ELOCTATE [Concomitant]
     Active Substance: (1-743)-(1638-2332)-BLOOD-COAGULATION FACTOR VIII (SYNTHETIC HUMAN) FUSION PROTEIN WITH IMMUNOGLOBULIN G1 (SYNTHETIC HUMAN FC DOMAIN FRAGMENT), (1444-6^),(1447-9^)-BIS(DISULFIDE) WITH IMMUNOGLOBULIN G1 (SYNTHETIC HUMAN FC DOMAIN FRAGMENT)
     Indication: FACTOR VIII DEFICIENCY
     Dates: start: 20150720
  11. ANTIHEMOPHILIC FACTOR (RECOMBINANT), FC FUSION PROTEIN [Suspect]
     Active Substance: (1-743)-(1638-2332)-BLOOD-COAGULATION FACTOR VIII (SYNTHETIC HUMAN) FUSION PROTEIN WITH IMMUNOGLOBULIN G1 (SYNTHETIC HUMAN FC DOMAIN FRAGMENT), (1444-6^),(1447-9^)-BIS(DISULFIDE) WITH IMMUNOGLOBULIN G1 (SYNTHETIC HUMAN FC DOMAIN FRAGMENT)
     Indication: FACTOR VIII DEFICIENCY
     Route: 042
     Dates: start: 20131118, end: 20150702
  12. KETOPROFEN. [Concomitant]
     Active Substance: KETOPROFEN
     Indication: STILL^S DISEASE ADULT ONSET
     Route: 062
     Dates: start: 20060130
  13. LOXONIN [Concomitant]
     Active Substance: LOXOPROFEN SODIUM
     Indication: STILL^S DISEASE ADULT ONSET
     Route: 048
     Dates: start: 20120827

REACTIONS (1)
  - Cubital tunnel syndrome [Recovered/Resolved]

NARRATIVE: CASE EVENT DATE: 20150707
